FAERS Safety Report 9950302 (Version 1)
Quarter: 2014Q1

REPORT INFORMATION
  Report Type: Report from Study
  Country: US (occurrence: US)
  Receive Date: 20140304
  Receipt Date: 20140304
  Transmission Date: 20141002
  Serious: No
  Sender: FDA-Public Use
  Company Number: US-ABBVIE-13P-163-1066435-00

PATIENT
  Age: 56 Year
  Sex: Male

DRUGS (11)
  1. HUMIRA [Suspect]
     Indication: COLITIS ULCERATIVE
     Dates: start: 20121202
  2. HUMIRA [Suspect]
     Dates: start: 20130325
  3. AZASAN [Concomitant]
     Indication: COLITIS ULCERATIVE
     Dosage: 175 MG DAILY
  4. COLAZAL [Concomitant]
     Indication: COLITIS ULCERATIVE
  5. PROZAC [Concomitant]
     Indication: DEPRESSION
     Dosage: 60 MG DAILY
  6. WELLBUTRIN [Concomitant]
     Indication: DEPRESSION
     Dosage: 150 MG DAILY
  7. BYSTOLIC [Concomitant]
     Indication: HYPERTENSION
     Dosage: 12.5 MG DAILY
  8. DIOVAN HCT [Concomitant]
     Indication: HYPERTENSION
     Dosage: 80 MG/12.5 MG DAILY
  9. OMEPRAZOLE [Concomitant]
     Indication: GASTROOESOPHAGEAL REFLUX DISEASE
     Dosage: 40 MG DAILY
  10. ATIVAN [Concomitant]
     Indication: ANXIETY
     Dosage: 2 MG AS NEEDED
  11. FIORICET [Concomitant]
     Indication: PAIN
     Dosage: AS NEEDED

REACTIONS (1)
  - Bacterial infection [Not Recovered/Not Resolved]
